FAERS Safety Report 12708721 (Version 2)
Quarter: 2017Q1

REPORT INFORMATION
  Report Type: Spontaneous
  Country: US (occurrence: US)
  Receive Date: 20160901
  Receipt Date: 20170323
  Transmission Date: 20170428
  Serious: Yes (Other)
  Sender: FDA-Public Use
  Company Number: US-PFIZER INC-2016197507

PATIENT
  Age: 72 Year
  Sex: Female
  Weight: 104.3 kg

DRUGS (21)
  1. LYRICA [Suspect]
     Active Substance: PREGABALIN
     Indication: SPINAL COLUMN STENOSIS
  2. NASONEX [Concomitant]
     Active Substance: MOMETASONE FUROATE
     Dosage: 50 UG, UNK
     Route: 045
  3. POLYMYXIN B -TRIMETHOPRIM OPHTHA. [Concomitant]
     Dosage: UNK,(POLYMYXIN B SULFATE 10000 IU/ML, TRIMETHOPRIM 0.1 IU/ML)
     Dates: start: 20141120
  4. POTASSIUM CHLORIDE. [Concomitant]
     Active Substance: POTASSIUM CHLORIDE
     Dosage: 20 MEQ, UNK
     Route: 048
  5. DALIRESP [Concomitant]
     Active Substance: ROFLUMILAST
     Dosage: 500 UG, UNK
     Route: 048
  6. DULERA [Concomitant]
     Active Substance: FORMOTEROL FUMARATE DIHYDRATE\MOMETASONE FUROATE
     Dosage: UNK, (FORMOTEROL FUMARATE 5 MCG, MOMETASONE FUROATE 200 MCG)
     Route: 055
  7. ILEVRO [Concomitant]
     Active Substance: NEPAFENAC
     Dosage: 0.3 %, UNK
     Route: 047
     Dates: start: 20141118
  8. SPIRIVA [Concomitant]
     Active Substance: TIOTROPIUM BROMIDE MONOHYDRATE
     Dosage: 18 UG, 1X/DAY,(CAPSULE ONE CAPSULE, TWO INHALATION QD)
     Dates: start: 20100805
  9. LYRICA [Suspect]
     Active Substance: PREGABALIN
     Indication: NEURITIS
  10. OXYCODONE AND ACETAMINOPHEN [Concomitant]
     Active Substance: ACETAMINOPHEN\OXYCODONE HYDROCHLORIDE
     Indication: PAIN
     Dosage: 1 DF,AS NEEDED (OXYCODONE HYDROCHLORIDE 10 MG, PARACETAMOL 325 MG)
     Route: 048
     Dates: start: 20160915
  11. SINGULAIR [Concomitant]
     Active Substance: MONTELUKAST SODIUM
     Dosage: UNK
  12. HYDROCHLOROTHIAZIDE. [Concomitant]
     Active Substance: HYDROCHLOROTHIAZIDE
     Dosage: 25 MG, UNK
     Route: 048
  13. LYRICA [Suspect]
     Active Substance: PREGABALIN
     Indication: BACK PAIN
     Dosage: 100 MG, 3X/DAY
     Route: 048
     Dates: start: 20150810
  14. PAROXETINE HCL [Concomitant]
     Active Substance: PAROXETINE HYDROCHLORIDE
     Dosage: 10 MG, UNK
     Route: 048
     Dates: start: 20141001
  15. LYRICA [Suspect]
     Active Substance: PREGABALIN
     Indication: INTERVERTEBRAL DISC DEGENERATION
  16. LYRICA [Suspect]
     Active Substance: PREGABALIN
     Indication: NEURALGIA
  17. HYDROCODONE [Concomitant]
     Active Substance: HYDROCODONE
     Indication: PAIN
     Dosage: 10 MG, 3X/DAY
  18. DUREZOL [Concomitant]
     Active Substance: DIFLUPREDNATE
     Dosage: 0.05 %, UNK
     Route: 047
     Dates: start: 20141118
  19. FUROSEMIDE. [Concomitant]
     Active Substance: FUROSEMIDE
     Dosage: 40 MG, UNK
     Route: 048
     Dates: start: 20140709
  20. PROAIR HFA [Concomitant]
     Active Substance: ALBUTEROL SULFATE
     Dosage: 108 UG, UNK
     Route: 055
  21. MELOXICAM. [Concomitant]
     Active Substance: MELOXICAM
     Dosage: 7.5 MG, AS NEEDED,(TAKE 1 TABLET TWICE DAILY WITH FOOD )
     Route: 048
     Dates: start: 20160303

REACTIONS (3)
  - Dysgraphia [Unknown]
  - Accident [Unknown]
  - Upper limb fracture [Recovering/Resolving]

NARRATIVE: CASE EVENT DATE: 20160731
